FAERS Safety Report 9631252 (Version 1)
Quarter: 2013Q4

REPORT INFORMATION
  Report Type: Spontaneous
  Country: US (occurrence: US)
  Receive Date: 20131018
  Receipt Date: 20131018
  Transmission Date: 20140711
  Serious: Yes (Hospitalization)
  Sender: FDA-Public Use
  Company Number: US-CELGENEUS-163-POMAL-13102242

PATIENT
  Age: 84 Year
  Sex: Male

DRUGS (3)
  1. POMALYST [Suspect]
     Indication: PLASMA CELL MYELOMA
     Dosage: 4 MILLIGRAM
     Route: 048
     Dates: start: 20130322
  2. POMALYST [Suspect]
     Dosage: 2 MILLIGRAM
     Route: 048
     Dates: start: 201306
  3. CHEMOTHERAPY [Suspect]
     Indication: PRODUCT USED FOR UNKNOWN INDICATION
     Route: 041

REACTIONS (2)
  - Myocardial infarction [Unknown]
  - Pneumonia [Unknown]
